FAERS Safety Report 20224565 (Version 2)
Quarter: 2022Q1

REPORT INFORMATION
  Report Type: Spontaneous
  Country: US (occurrence: US)
  Receive Date: 20211223
  Receipt Date: 20220105
  Transmission Date: 20220424
  Serious: Yes (Life-Threatening, Hospitalization, Congenital Anomaly)
  Sender: FDA-Public Use
  Company Number: US-TEVA-2021-US-1989850

PATIENT
  Sex: Male

DRUGS (8)
  1. DEXMEDETOMIDINE [Suspect]
     Active Substance: DEXMEDETOMIDINE
     Indication: Maternal exposure timing unspecified
     Route: 064
  2. NOREPINEPHRINE [Suspect]
     Active Substance: NOREPINEPHRINE
     Indication: Maternal exposure timing unspecified
     Route: 064
  3. FENTANYL [Suspect]
     Active Substance: FENTANYL
     Indication: Maternal exposure timing unspecified
     Route: 064
  4. MIDAZOLAM [Suspect]
     Active Substance: MIDAZOLAM
     Indication: Maternal exposure timing unspecified
     Route: 064
  5. BELBUCA [Suspect]
     Active Substance: BUPRENORPHINE HYDROCHLORIDE
     Indication: Maternal exposure timing unspecified
     Route: 064
  6. SUBOXONE [Suspect]
     Active Substance: BUPRENORPHINE HYDROCHLORIDE\NALOXONE HYDROCHLORIDE
     Indication: Maternal exposure timing unspecified
     Route: 064
  7. METHADONE [Suspect]
     Active Substance: METHADONE HYDROCHLORIDE
     Indication: Maternal exposure timing unspecified
     Route: 064
  8. PHENOBARBITAL [Suspect]
     Active Substance: PHENOBARBITAL
     Indication: Maternal exposure timing unspecified
     Route: 064

REACTIONS (4)
  - Drug withdrawal syndrome neonatal [Unknown]
  - Laryngomalacia [Unknown]
  - Feeding disorder [Unknown]
  - Foetal exposure during pregnancy [Unknown]
